FAERS Safety Report 4535597-4 (Version None)
Quarter: 2004Q4

REPORT INFORMATION
  Report Type: 
  Country: None (occurrence: None)
  Receive Date: 20041222
  Receipt Date: 20041213
  Transmission Date: 20050328
  Serious: Yes (Hospitalization)
  Sender: FDA-Public Use
  Company Number: DEWYE280414DEC04

PATIENT
  Sex: Female
  Weight: 110 kg

DRUGS (8)
  1. ENBREL [Suspect]
     Indication: RHEUMATOID ARTHRITIS
     Route: 058
     Dates: start: 20030401, end: 20040908
  2. ALLOPURINOL [Concomitant]
     Route: 048
     Dates: start: 20040901
  3. RAMIPRIL [Concomitant]
     Route: 048
     Dates: start: 19900701
  4. TOREM [Concomitant]
     Route: 048
     Dates: start: 19990701
  5. BELOC ZOK [Concomitant]
     Route: 048
     Dates: start: 19940401
  6. BEXTRA [Concomitant]
     Route: 048
     Dates: start: 20020601
  7. NEXIUM [Concomitant]
     Route: 048
     Dates: start: 20040901
  8. AMPICILLIN SODIUM/SULBACTAM SODIUM [Concomitant]
     Indication: URINARY TRACT INFECTION
     Route: 048
     Dates: start: 20040901, end: 20041001

REACTIONS (5)
  - EXANTHEM [None]
  - PNEUMONIA STAPHYLOCOCCAL [None]
  - RENAL FAILURE ACUTE [None]
  - STAPHYLOCOCCAL SEPSIS [None]
  - URTICARIA [None]
